FAERS Safety Report 8320782-6 (Version None)
Quarter: 2012Q2

REPORT INFORMATION
  Report Type: 
  Country: None (occurrence: None)
  Receive Date: 20120430
  Receipt Date: 20120420
  Transmission Date: 20120825
  Serious: Yes (Death, Life-Threatening, Hospitalization)
  Sender: FDA-Public Use
  Company Number: PHHO2009BR14957

PATIENT
  Sex: Male
  Weight: 78.1 kg

DRUGS (3)
  1. TACROLIMUS [Suspect]
     Indication: LIVER TRANSPLANT
     Dosage: 17 MG, TOTAL DAILY DOSE
     Route: 048
     Dates: start: 20091005
  2. EVEROLIMUS [Suspect]
     Indication: LIVER TRANSPLANT
     Dosage: 1 MG, DAILY
     Route: 048
     Dates: start: 20091105, end: 20091125
  3. INSULIN [Concomitant]
     Indication: DIABETES MELLITUS
     Dosage: UNK
     Dates: start: 20080101

REACTIONS (7)
  - KLEBSIELLA INFECTION [None]
  - PYREXIA [None]
  - CIRRHOSIS ALCOHOLIC [None]
  - BRONCHOPNEUMONIA [None]
  - THROMBOCYTOPENIA [None]
  - HEPATIC ARTERY THROMBOSIS [None]
  - SEPTIC SHOCK [None]
